FAERS Safety Report 11431328 (Version 1)
Quarter: 2015Q3

REPORT INFORMATION
  Report Type: Spontaneous
  Country: US (occurrence: US)
  Receive Date: 20150828
  Receipt Date: 20150828
  Transmission Date: 20151125
  Serious: No
  Sender: FDA-Public Use
  Company Number: US-009507513-1508USA007750

PATIENT
  Age: 21 Year
  Sex: Female
  Weight: 106.58 kg

DRUGS (1)
  1. NEXPLANON [Suspect]
     Active Substance: ETONOGESTREL
     Indication: CONTRACEPTION
     Dosage: UNK, CYCLICAL
     Route: 059
     Dates: start: 20141217

REACTIONS (12)
  - Hypoaesthesia [Not Recovered/Not Resolved]
  - Depression [Not Recovered/Not Resolved]
  - Fatigue [Not Recovered/Not Resolved]
  - Pregnancy with implant contraceptive [Unknown]
  - Nausea [Not Recovered/Not Resolved]
  - Dizziness [Not Recovered/Not Resolved]
  - Migraine [Not Recovered/Not Resolved]
  - Muscle spasms [Not Recovered/Not Resolved]
  - Mood swings [Not Recovered/Not Resolved]
  - Alopecia [Not Recovered/Not Resolved]
  - Weight increased [Not Recovered/Not Resolved]
  - Abdominal distension [Not Recovered/Not Resolved]

NARRATIVE: CASE EVENT DATE: 201501
